FAERS Safety Report 5101232-X (Version None)
Quarter: 2006Q3

REPORT INFORMATION
  Report Type: 
  Country: None (occurrence: None)
  Receive Date: 20060906
  Receipt Date: 20060830
  Transmission Date: 20061208
  Serious: Yes (Hospitalization)
  Sender: FDA-Public Use
  Company Number: 2006BI012364

PATIENT
  Age: 29 Year
  Sex: Male

DRUGS (2)
  1. NATALIZUMAB (NATALIZUMAB) [Suspect]
     Indication: MULTIPLE SCLEROSIS
     Dosage: IV
     Route: 042
     Dates: start: 20060818
  2. ANTI-EPILEPTICS [Concomitant]

REACTIONS (1)
  - STATUS EPILEPTICUS [None]
